FAERS Safety Report 9257028 (Version 1)
Quarter: 2013Q2

REPORT INFORMATION
  Report Type: Spontaneous
  Country: LB (occurrence: LB)
  Receive Date: 20130426
  Receipt Date: 20130426
  Transmission Date: 20140414
  Serious: Yes (Death, Other)
  Sender: FDA-Public Use
  Company Number: LB-CELGENEUS-093-20785-11090574

PATIENT
  Sex: 0

DRUGS (6)
  1. THALIDOMIDE [Suspect]
     Indication: MYELOFIBROSIS
     Dosage: 200 MILLIGRAM
     Route: 048
     Dates: start: 201004, end: 201008
  2. CYTODROX [Concomitant]
     Indication: MYELOFIBROSIS
     Dosage: 1000 MILLIGRAM
     Route: 065
     Dates: end: 201011
  3. ZYLORIC [Concomitant]
     Indication: HYPERURICAEMIA
     Dosage: 200 MILLIGRAM
     Route: 065
     Dates: end: 201011
  4. CONCOR [Concomitant]
     Indication: HYPERTENSION
     Route: 065
     Dates: end: 201011
  5. LASIX [Concomitant]
     Indication: PRODUCT USED FOR UNKNOWN INDICATION
     Dosage: 40 MILLIGRAM
     Route: 065
     Dates: end: 201011
  6. CRESTOR [Concomitant]
     Indication: PRODUCT USED FOR UNKNOWN INDICATION
     Dosage: 20 MILLIGRAM
     Route: 065
     Dates: end: 201011

REACTIONS (4)
  - Multi-organ failure [Fatal]
  - Infection [Fatal]
  - Haemoglobin decreased [Fatal]
  - Bradycardia [Fatal]
